FAERS Safety Report 5257556-9 (Version None)
Quarter: 2007Q1

REPORT INFORMATION
  Report Type: 
  Country: None (occurrence: None)
  Receive Date: 20070307
  Receipt Date: 20060914
  Transmission Date: 20070707
  Serious: No
  Sender: FDA-Public Use
  Company Number: US-GLAXOSMITHKLINE-A0620191A

PATIENT
  Age: 71 Year
  Sex: Male

DRUGS (16)
  1. REQUIP [Suspect]
     Indication: RESTLESS LEGS SYNDROME
     Dosage: 2MG PER DAY
     Route: 048
  2. ACTOS [Concomitant]
  3. TOPROL-XL [Concomitant]
  4. LYRICA [Concomitant]
  5. FLOMAX [Concomitant]
  6. MECLIZINE [Concomitant]
  7. MEPERIDINE HCL [Concomitant]
  8. FUROSEMIDE [Concomitant]
  9. GABAPENTIN [Concomitant]
  10. ZOCOR [Concomitant]
  11. OXYCODONE HCL [Concomitant]
  12. KLONOPIN [Concomitant]
  13. ASPIRIN [Concomitant]
  14. COZAAR [Concomitant]
  15. DIGITEK [Concomitant]
  16. PROVIGIL [Concomitant]

REACTIONS (2)
  - DRUG INEFFECTIVE [None]
  - OVERDOSE [None]
